FAERS Safety Report 16988045 (Version 4)
Quarter: 2020Q4

REPORT INFORMATION
  Report Type: Spontaneous
  Country: DE (occurrence: DE)
  Receive Date: 20191104
  Receipt Date: 20201215
  Transmission Date: 20210113
  Serious: Yes (Other)
  Sender: FDA-Public Use
  Company Number: DE-AUROBINDO-AUR-APL-2019-070261

PATIENT
  Sex: Female

DRUGS (11)
  1. EXEMESTANE. [Suspect]
     Active Substance: EXEMESTANE
     Indication: BREAST CANCER
     Dosage: UNK
     Route: 065
     Dates: start: 201606
  2. EVEROLIMUS. [Suspect]
     Active Substance: EVEROLIMUS
     Indication: BREAST CANCER
     Dosage: UNK
     Route: 065
     Dates: start: 201606
  3. GEMCITABINE. [Suspect]
     Active Substance: GEMCITABINE
     Indication: BREAST CANCER
     Dosage: UNK
     Route: 065
     Dates: start: 201403
  4. IBANDRONIC ACID. [Suspect]
     Active Substance: IBANDRONIC ACID
     Dosage: UNK
     Route: 065
     Dates: start: 201501, end: 201512
  5. IBANDRONIC ACID. [Suspect]
     Active Substance: IBANDRONIC ACID
     Indication: BREAST CANCER
     Dosage: UNK
     Route: 065
     Dates: start: 201103, end: 201403
  6. CAPECITABINE. [Suspect]
     Active Substance: CAPECITABINE
     Indication: BREAST CANCER
     Dosage: UNK
     Route: 065
     Dates: start: 201501
  7. FASLODEX [Concomitant]
     Active Substance: FULVESTRANT
     Indication: BREAST CANCER
     Dosage: UNK
     Route: 065
     Dates: start: 201404
  8. ERIBULIN [Concomitant]
     Active Substance: ERIBULIN
     Indication: BREAST CANCER
     Dosage: 6X D1/D8
     Route: 065
     Dates: start: 201603
  9. MITOMYCIN. [Concomitant]
     Active Substance: MITOMYCIN
     Indication: BREAST CANCER
     Dosage: UNK
     Route: 065
     Dates: start: 201403
  10. IBANDRONIC ACID. [Suspect]
     Active Substance: IBANDRONIC ACID
     Dosage: UNK
     Route: 065
     Dates: start: 201404, end: 201412
  11. IBANDRONIC ACID. [Suspect]
     Active Substance: IBANDRONIC ACID
     Dosage: UNK
     Route: 065
     Dates: start: 201606

REACTIONS (3)
  - Malignant neoplasm progression [Unknown]
  - Breast cancer [Unknown]
  - Metastases to liver [Unknown]

NARRATIVE: CASE EVENT DATE: 201103
